FAERS Safety Report 7518438-2 (Version None)
Quarter: 2011Q2

REPORT INFORMATION
  Report Type: 
  Country: None (occurrence: None)
  Receive Date: 20110601
  Receipt Date: 20110601
  Transmission Date: 20111010
  Serious: Yes (Other)
  Sender: FDA-Public Use
  Company Number: None

PATIENT
  Age: 76 Year
  Weight: 117.9352 kg

DRUGS (1)
  1. CLINDAMYCIN HCL [Suspect]
     Indication: INFECTION PROPHYLAXIS
     Dosage: 1 CAPSULE 4 TIMES DAILY PO
     Route: 048
     Dates: start: 20110523, end: 20110525

REACTIONS (3)
  - DIZZINESS [None]
  - DYSPNOEA [None]
  - DIARRHOEA [None]
